FAERS Safety Report 4705080-1 (Version None)
Quarter: 2005Q3

REPORT INFORMATION
  Report Type: 
  Country: None (occurrence: None)
  Receive Date: 20050701
  Receipt Date: 20050610
  Transmission Date: 20060218
  Serious: Yes (Disabling)
  Sender: FDA-Public Use
  Company Number: IT-SANOFI-SYNTHELABO-F01200501003

PATIENT
  Sex: Male
  Weight: 79 kg

DRUGS (5)
  1. OXALIPLATIN [Suspect]
     Indication: RECTAL CANCER
     Route: 042
     Dates: start: 20050530, end: 20050530
  2. FLUOROURACIL [Suspect]
     Dosage: (CONTINUOUS INFUSION FOR APPROMIXATELY 6 WEEKS)
     Route: 042
     Dates: start: 20050502, end: 20050530
  3. LIMICAN [Concomitant]
     Route: 065
  4. KYTRIL [Concomitant]
     Route: 065
  5. RANIDIL [Concomitant]
     Dosage: UNK
     Route: 065

REACTIONS (1)
  - GUILLAIN-BARRE SYNDROME [None]
